FAERS Safety Report 12729733 (Version 3)
Quarter: 2017Q1

REPORT INFORMATION
  Report Type: Report from Study
  Country: JP (occurrence: JP)
  Receive Date: 20160909
  Receipt Date: 20170120
  Transmission Date: 20170428
  Serious: Yes (Death, Hospitalization, Other)
  Sender: FDA-Public Use
  Company Number: JP-INCYTE CORPORATION-2016IN005067

PATIENT
  Age: 67 Year
  Sex: Male
  Weight: 44 kg

DRUGS (12)
  1. JAKAVI [Suspect]
     Active Substance: RUXOLITINIB
     Indication: MYELOFIBROSIS
     Dosage: 5 MG, BID
     Route: 048
     Dates: start: 20150617
  2. JAKAVI [Suspect]
     Active Substance: RUXOLITINIB
     Dosage: 5 MG, BID
     Route: 048
     Dates: start: 20160502, end: 20160725
  3. IRRADIATED RED CELLS CONCENTRATES-LEUKOCYTES [Concomitant]
     Dosage: 2 IU, UNK
     Route: 041
     Dates: start: 20160809, end: 20160809
  4. CEFTRIAXONE. [Concomitant]
     Active Substance: CEFTRIAXONE
     Indication: ULCER
  5. JAKAVI [Suspect]
     Active Substance: RUXOLITINIB
     Dosage: 5 MG, BID
     Route: 048
     Dates: start: 20150728, end: 20160201
  6. IRRADIATED RED BLOOD CELLS-LEUKOCYTES REDUCED [Concomitant]
     Indication: PRIMARY MYELOFIBROSIS
     Dosage: 2 IU, UNK
     Route: 041
     Dates: start: 20160725, end: 20160725
  7. JAKAVI [Suspect]
     Active Substance: RUXOLITINIB
     Dosage: 10 MG, BID
     Route: 048
     Dates: start: 20150706, end: 20150722
  8. JAKAVI [Suspect]
     Active Substance: RUXOLITINIB
     Dosage: 2.5MG, BID
     Route: 048
     Dates: start: 20160726, end: 20160808
  9. IRRADIATED RED CELLS CONCENTRATES-LEUKOCYTES [Concomitant]
     Indication: PRIMARY MYELOFIBROSIS
     Dosage: 4 IU, UNK
     Route: 041
     Dates: start: 20160808, end: 20160809
  10. CEFTRIAXONE. [Concomitant]
     Active Substance: CEFTRIAXONE
     Indication: MASS
     Dosage: 4 G, UNK
     Route: 041
     Dates: start: 20150617, end: 20150626
  11. JAKAVI [Suspect]
     Active Substance: RUXOLITINIB
     Dosage: 5 MG, BID
     Route: 048
     Dates: start: 20160328, end: 20160418
  12. JAKAVI [Suspect]
     Active Substance: RUXOLITINIB
     Dosage: 5 MG, BID
     Route: 048
     Dates: start: 20160222, end: 20160314

REACTIONS (6)
  - Chest wall haematoma [Not Recovered/Not Resolved]
  - Haemoglobin decreased [Not Recovered/Not Resolved]
  - Hypoglycaemia [Recovered/Resolved]
  - White blood cell count increased [Not Recovered/Not Resolved]
  - Myelofibrosis [Fatal]
  - Platelet count decreased [Not Recovered/Not Resolved]

NARRATIVE: CASE EVENT DATE: 20160201
